FAERS Safety Report 5996793-2 (Version None)
Quarter: 2008Q4

REPORT INFORMATION
  Report Type: 
  Country: None (occurrence: None)
  Receive Date: 20081212
  Receipt Date: 20081027
  Transmission Date: 20090506
  Serious: No
  Sender: FDA-Public Use
  Company Number: US-ABBOTT-08P-163-0483877-00

PATIENT
  Sex: Female
  Weight: 71.278 kg

DRUGS (3)
  1. HUMIRA [Suspect]
     Indication: RHEUMATOID ARTHRITIS
     Dates: start: 20070801, end: 20081006
  2. HUMIRA [Suspect]
     Dates: start: 20081006
  3. METHOTREXATE [Concomitant]
     Indication: RHEUMATOID ARTHRITIS
     Dosage: 6-2.5MG TABS WEEKLY
     Route: 048
     Dates: start: 19910101

REACTIONS (2)
  - MOBILITY DECREASED [None]
  - RHEUMATOID ARTHRITIS [None]
